FAERS Safety Report 6868477-X (Version None)
Quarter: 2010Q3

REPORT INFORMATION
  Report Type: 
  Country: None (occurrence: None)
  Receive Date: 20100722
  Receipt Date: 20080524
  Transmission Date: 20110219
  Serious: No
  Sender: FDA-Public Use
  Company Number: US-PFIZER INC-2008046166

PATIENT
  Age: 48 Year
  Sex: Female
  Weight: 63.636 kg

DRUGS (4)
  1. CHANTIX [Suspect]
     Indication: SMOKING CESSATION THERAPY
     Dates: start: 20080515
  2. CYMBALTA [Concomitant]
     Indication: DEPRESSION
  3. LEXAPRO [Concomitant]
     Indication: DEPRESSION
  4. STOOL SOFTENER [Concomitant]
     Indication: CONSTIPATION

REACTIONS (3)
  - AGITATION [None]
  - CONSTIPATION [None]
  - DEPRESSION [None]
